FAERS Safety Report 8979574 (Version 3)
Quarter: 2013Q2

REPORT INFORMATION
  Report Type: Spontaneous
  Country: GB (occurrence: GB)
  Receive Date: 20121221
  Receipt Date: 20130415
  Transmission Date: 20140414
  Serious: Yes (Death, Other)
  Sender: FDA-Public Use
  Company Number: PHFR2012GB006555

PATIENT
  Sex: Male

DRUGS (1)
  1. CLOZARIL [Suspect]
     Indication: SCHIZOPHRENIA
     Dosage: UNK
     Dates: start: 20010701

REACTIONS (5)
  - Respiratory disorder [Fatal]
  - Sleep apnoea syndrome [Fatal]
  - Obesity [Fatal]
  - Choking [Fatal]
  - Diabetes mellitus [Unknown]
